FAERS Safety Report 12731999 (Version 1)
Quarter: 2016Q3

REPORT INFORMATION
  Report Type: Spontaneous
  Country: US (occurrence: US)
  Receive Date: 20160912
  Receipt Date: 20160912
  Transmission Date: 20161109
  Serious: No
  Sender: FDA-Public Use
  Company Number: US-PFIZER INC-2016425628

PATIENT
  Age: 61 Year
  Sex: Female

DRUGS (2)
  1. DOXYCYCLINE HYCLATE. [Suspect]
     Active Substance: DOXYCYCLINE HYCLATE
     Dosage: UNK
  2. THIMEROSAL [Suspect]
     Active Substance: THIMEROSAL
     Dosage: UNK

REACTIONS (1)
  - Drug hypersensitivity [Unknown]
